FAERS Safety Report 15105506 (Version 3)
Quarter: 2018Q3

REPORT INFORMATION
  Report Type: Report from Study
  Country: AU (occurrence: AU)
  Receive Date: 20180704
  Receipt Date: 20180720
  Transmission Date: 20181010
  Serious: Yes (Other)
  Sender: FDA-Public Use
  Company Number: AU-BIOGEN-2018BI00546922

PATIENT
  Age: 25 Year
  Sex: Female

DRUGS (3)
  1. TECFIDERA [Suspect]
     Active Substance: DIMETHYL FUMARATE
     Dosage: MAINTENANCE DOSE
     Route: 048
  2. TECFIDERA [Suspect]
     Active Substance: DIMETHYL FUMARATE
     Indication: MULTIPLE SCLEROSIS
     Dosage: STARTING DOSE
     Route: 048
     Dates: start: 20180316
  3. TECFIDERA [Suspect]
     Active Substance: DIMETHYL FUMARATE
     Dosage: MAINTENANCE DOSE
     Route: 048

REACTIONS (20)
  - Nausea [Recovered/Resolved with Sequelae]
  - Motor dysfunction [Recovered/Resolved]
  - Viral infection [Not Recovered/Not Resolved]
  - Hypoacusis [Unknown]
  - Limb discomfort [Recovered/Resolved]
  - Stress [Not Recovered/Not Resolved]
  - Intentional underdose [Unknown]
  - Skin burning sensation [Not Recovered/Not Resolved]
  - Central nervous system lesion [Not Recovered/Not Resolved]
  - Loss of control of legs [Recovered/Resolved]
  - Body temperature increased [Unknown]
  - Upper respiratory tract infection [Not Recovered/Not Resolved]
  - Pruritus [Recovered/Resolved with Sequelae]
  - Vomiting [Recovered/Resolved with Sequelae]
  - Dyspepsia [Unknown]
  - Weight increased [Unknown]
  - Diarrhoea [Recovered/Resolved with Sequelae]
  - Multiple sclerosis [Not Recovered/Not Resolved]
  - Abdominal pain [Recovered/Resolved]
  - Hot flush [Not Recovered/Not Resolved]

NARRATIVE: CASE EVENT DATE: 2018
